FAERS Safety Report 11060716 (Version 1)
Quarter: 2015Q2

REPORT INFORMATION
  Report Type: Spontaneous
  Country: FR (occurrence: FR)
  Receive Date: 20150423
  Receipt Date: 20150423
  Transmission Date: 20150821
  Serious: Yes (Life-Threatening)
  Sender: FDA-Public Use
  Company Number: FR-ASTRAZENECA-2015SE35835

PATIENT
  Age: 23893 Day
  Sex: Female

DRUGS (7)
  1. MIDAZOLAM [Suspect]
     Active Substance: MIDAZOLAM\MIDAZOLAM HYDROCHLORIDE
     Route: 042
     Dates: start: 20150305, end: 20150305
  2. PARACETAMOL [Suspect]
     Active Substance: ACETAMINOPHEN
     Route: 042
     Dates: start: 20150305, end: 20150305
  3. DALACINE [Suspect]
     Active Substance: CLINDAMYCIN HYDROCHLORIDE
     Dosage: 600 MG/4ML, UNKNOWN
     Route: 042
     Dates: start: 20150305, end: 20150305
  4. SOLU-MEDROL [Suspect]
     Active Substance: METHYLPREDNISOLONE SODIUM SUCCINATE
     Dosage: 120 MG PER DAY
     Route: 042
     Dates: start: 20150305, end: 20150305
  5. SOLU-MEDROL [Suspect]
     Active Substance: METHYLPREDNISOLONE SODIUM SUCCINATE
     Dosage: TWO NEW ADMINISTRATIONS
     Route: 042
     Dates: start: 20150305, end: 20150305
  6. ZOPHREN [Suspect]
     Active Substance: ONDANSETRON
     Dosage: 4 MG/2ML, ONE PER DAY
     Route: 042
     Dates: start: 20150305, end: 20150305
  7. NAROPEINE [Suspect]
     Active Substance: ROPIVACAINE HYDROCHLORIDE
     Route: 050
     Dates: start: 20150305, end: 20150305

REACTIONS (1)
  - Anaphylactic shock [Recovered/Resolved]

NARRATIVE: CASE EVENT DATE: 20150305
